FAERS Safety Report 6622205-1 (Version None)
Quarter: 2010Q1

REPORT INFORMATION
  Report Type: 
  Country: None (occurrence: None)
  Receive Date: 20100310
  Receipt Date: 20100301
  Transmission Date: 20100710
  Serious: Yes (Hospitalization)
  Sender: FDA-Public Use
  Company Number: US-BIOGENIDEC-2010BI005339

PATIENT
  Age: 51 Year
  Sex: Female
  Weight: 86 kg

DRUGS (5)
  1. TYSABRI [Suspect]
     Indication: MULTIPLE SCLEROSIS
     Route: 042
     Dates: start: 20091014
  2. DEMEROL [Concomitant]
     Indication: MIGRAINE
  3. PHENERGAN HCL [Concomitant]
     Indication: NAUSEA
  4. VOLTAREN [Concomitant]
     Indication: OPTIC NERVE DISORDER
     Dates: start: 20090831
  5. MUSCLE RELAXER (NOS) [Concomitant]

REACTIONS (24)
  - APHASIA [None]
  - BLADDER PROLAPSE [None]
  - BODY TEMPERATURE INCREASED [None]
  - BRONCHITIS [None]
  - COAGULOPATHY [None]
  - COGNITIVE DISORDER [None]
  - COUGH [None]
  - DECREASED APPETITE [None]
  - DEHYDRATION [None]
  - DIARRHOEA [None]
  - DYSPNOEA [None]
  - FATIGUE [None]
  - HYPERTENSION [None]
  - IMMUNE SYSTEM DISORDER [None]
  - MENTAL IMPAIRMENT [None]
  - MIGRAINE [None]
  - MULTIPLE SCLEROSIS RELAPSE [None]
  - MUSCLE SPASMS [None]
  - MUSCLE TWITCHING [None]
  - NAUSEA [None]
  - PNEUMONIA [None]
  - THROMBOSIS [None]
  - UTERINE PROLAPSE [None]
  - VOMITING [None]
